FAERS Safety Report 10896628 (Version 1)
Quarter: 2015Q1

REPORT INFORMATION
  Report Type: Spontaneous
  Country: FR (occurrence: None)
  Receive Date: 20150302
  Receipt Date: 20150302
  Transmission Date: 20150721
  Serious: Yes (Other)
  Sender: FDA-Public Use
  Company Number: FR2015GSK023720

PATIENT
  Age: 42 Year
  Sex: Male

DRUGS (3)
  1. PREZISTA [Concomitant]
     Active Substance: DARUNAVIR ETHANOLATE
  2. KIVEXA [Suspect]
     Active Substance: ABACAVIR SULFATE\LAMIVUDINE
     Indication: HIV INFECTION
     Route: 048
     Dates: start: 20140623, end: 20140728
  3. NORVIR [Concomitant]
     Active Substance: RITONAVIR

REACTIONS (3)
  - Amyotrophy [None]
  - Condition aggravated [None]
  - Muscle fatigue [None]

NARRATIVE: CASE EVENT DATE: 20140728
